FAERS Safety Report 12759865 (Version 1)
Quarter: 2016Q3

REPORT INFORMATION
  Report Type: Spontaneous
  Country: FR (occurrence: FR)
  Receive Date: 20160919
  Receipt Date: 20160919
  Transmission Date: 20161109
  Serious: Yes (Other)
  Sender: FDA-Public Use
  Company Number: FR-MYLANLABS-2016M1039640

PATIENT

DRUGS (1)
  1. IRBESARTAN MYLAN 150 MG, COMPRIM? [Suspect]
     Active Substance: IRBESARTAN
     Indication: PRODUCT USED FOR UNKNOWN INDICATION
     Dosage: 1 DF, UNK

REACTIONS (3)
  - Product substitution issue [None]
  - Urticaria [Recovered/Resolved]
  - Blood pressure increased [Recovered/Resolved]
